FAERS Safety Report 5509735-0 (Version None)
Quarter: 2007Q4

REPORT INFORMATION
  Report Type: 
  Country: None (occurrence: None)
  Receive Date: 20071106
  Receipt Date: 20071022
  Transmission Date: 20080405
  Serious: Yes (Hospitalization)
  Sender: FDA-Public Use
  Company Number: 100#03#2007-04241

PATIENT
  Age: 75 Year
  Sex: Female

DRUGS (5)
  1. ERYTHROMYCIN (ERYTHROMYCIN) (ERYTHROMYCIN) [Suspect]
     Indication: PROPHYLAXIS URINARY TRACT INFECTION
     Dosage: 250 MG FOUR TIMES A DAY; 500 MG (2 DOSES GIVEN 6 HOURS APART)
     Route: 048
  2. CARBIMAZOLE [Suspect]
     Indication: HYPERTHYROIDISM
  3. DIGOXIN [Concomitant]
  4. FUROSEMIDE [Concomitant]
  5. WARFARIN SODIUM [Concomitant]

REACTIONS (5)
  - ATRIAL FIBRILLATION [None]
  - BLOOD POTASSIUM DECREASED [None]
  - DRUG INTERACTION [None]
  - HYPOTHYROIDISM [None]
  - TORSADE DE POINTES [None]
